FAERS Safety Report 8984172 (Version 1)
Quarter: 2012Q4

REPORT INFORMATION
  Report Type: 
  Country: US (occurrence: US)
  Receive Date: 20121226
  Receipt Date: 20121226
  Transmission Date: 20130627
  Serious: Yes (Death, Hospitalization, Other)
  Sender: FDA-Public Use
  Company Number: US-AMGEN-USASP2012082986

PATIENT
  Age: 36 Year
  Sex: Male

DRUGS (2)
  1. ENBREL [Suspect]
     Indication: RHEUMATOID ARTHRITIS
     Dosage: UNK
  2. METHOTREXATE [Concomitant]
     Dosage: UNK

REACTIONS (11)
  - Metabolic acidosis [Fatal]
  - Cholecystitis [Unknown]
  - Lymphoma [Unknown]
  - Pancytopenia [Unknown]
  - Rash maculo-papular [Unknown]
  - Hypersensitivity [Unknown]
  - Toxic epidermal necrolysis [Unknown]
  - Lymphadenopathy [Unknown]
  - Pseudomonas infection [Unknown]
  - Tuberculosis [Unknown]
  - Fungal infection [Unknown]
